FAERS Safety Report 10552630 (Version 1)
Quarter: 2014Q4

REPORT INFORMATION
  Report Type: Report from Study
  Country: US (occurrence: US)
  Receive Date: 20141029
  Receipt Date: 20141029
  Transmission Date: 20150529
  Serious: Yes (Death, Other)
  Sender: FDA-Public Use
  Company Number: US-ROXANE LABORATORIES, INC.-2014-BI-50839GD

PATIENT

DRUGS (9)
  1. MEXILETINE [Suspect]
     Active Substance: MEXILETINE
     Indication: FOETAL ARRHYTHMIA
     Route: 065
  2. LIDOCAINE. [Suspect]
     Active Substance: LIDOCAINE
     Indication: FOETAL ARRHYTHMIA
  3. MAGNESIUM [Suspect]
     Active Substance: MAGNESIUM
     Indication: ATRIOVENTRICULAR BLOCK SECOND DEGREE
  4. MEXILETINE [Suspect]
     Active Substance: MEXILETINE
     Indication: ATRIOVENTRICULAR BLOCK SECOND DEGREE
  5. MAGNESIUM [Suspect]
     Active Substance: MAGNESIUM
     Indication: TORSADE DE POINTES
     Route: 064
  6. MEXILETINE [Suspect]
     Active Substance: MEXILETINE
     Indication: TORSADE DE POINTES
     Route: 064
  7. MAGNESIUM [Suspect]
     Active Substance: MAGNESIUM
     Indication: FOETAL ARRHYTHMIA
  8. LIDOCAINE. [Suspect]
     Active Substance: LIDOCAINE
     Indication: TORSADE DE POINTES
     Route: 064
  9. LIDOCAINE. [Suspect]
     Active Substance: LIDOCAINE
     Indication: ATRIOVENTRICULAR BLOCK SECOND DEGREE

REACTIONS (2)
  - Premature baby [Unknown]
  - Sudden cardiac death [Fatal]
